FAERS Safety Report 10308536 (Version 1)
Quarter: 2014Q3

REPORT INFORMATION
  Report Type: Spontaneous
  Country: FR (occurrence: FR)
  Receive Date: 20140716
  Receipt Date: 20140716
  Transmission Date: 20150326
  Serious: Yes (Other)
  Sender: FDA-Public Use
  Company Number: FR-TEVA-493892ISR

PATIENT
  Age: 68 Year
  Sex: Female

DRUGS (1)
  1. ZOLPIDEM RATIOPHARM 10MG [Suspect]
     Active Substance: ZOLPIDEM TARTRATE
     Indication: INSOMNIA
     Dosage: TAKEN ONCE
     Route: 048
     Dates: start: 20070917, end: 20070917

REACTIONS (3)
  - Loss of consciousness [Recovered/Resolved]
  - Vertigo [Recovered/Resolved]
  - Malaise [Recovered/Resolved]

NARRATIVE: CASE EVENT DATE: 20070917
